FAERS Safety Report 9105484 (Version 2)
Quarter: 2013Q1

REPORT INFORMATION
  Report Type: Spontaneous
  Country: US (occurrence: US)
  Receive Date: 20130220
  Receipt Date: 20130311
  Transmission Date: 20140127
  Serious: Yes (Other)
  Sender: FDA-Public Use
  Company Number: US-ELI_LILLY_AND_COMPANY-US201302003968

PATIENT
  Age: 32 Year
  Sex: Male
  Weight: 91.61 kg

DRUGS (2)
  1. CYMBALTA [Suspect]
     Indication: DEPRESSION
     Dosage: 90 MG, QD
     Route: 048
     Dates: start: 20110617
  2. CYMBALTA [Suspect]
     Dosage: UNK, UNKNOWN

REACTIONS (4)
  - Suicidal ideation [Unknown]
  - Intentional drug misuse [Unknown]
  - Withdrawal syndrome [Unknown]
  - Depression [Unknown]
